FAERS Safety Report 9251602 (Version 2)
Quarter: 2013Q2

REPORT INFORMATION
  Report Type: Spontaneous
  Country: US (occurrence: US)
  Receive Date: 20130424
  Receipt Date: 20130502
  Transmission Date: 20140414
  Serious: Yes (Hospitalization)
  Sender: FDA-Public Use
  Company Number: PHEH2013US008959

PATIENT
  Sex: Male

DRUGS (16)
  1. TASIGNA [Suspect]
     Indication: ACUTE MYELOID LEUKAEMIA
     Dosage: 150 MG, UNK
     Route: 048
  2. AMITRIPTYLINE HCL [Suspect]
     Dosage: 10 MG, QD
  3. GLEEVEC [Concomitant]
     Dosage: 400 MG
  4. LEVOTHYROXINE [Concomitant]
     Dosage: 50 MG
  5. TRAMADOL [Concomitant]
     Dosage: 50 MG, BID
  6. HYDROCODONE [Concomitant]
     Dosage: 500 MG, TID
  7. GABAPENTIN [Concomitant]
     Dosage: 300 MG
  8. TAMSULOSIN HCL [Concomitant]
     Dosage: 0.4 MG
  9. HYDROCHLOROTHIAZIDE [Concomitant]
     Dosage: 25 MG
  10. RANITIDINE [Concomitant]
  11. DICYCLOMINE [Concomitant]
     Dosage: 10 MG, TID
  12. AZOPT [Concomitant]
     Dosage: 1 %
  13. LUMIGAN [Concomitant]
     Dosage: 0.03 %
  14. FISH OIL [Concomitant]
  15. MAGNESIUM [Concomitant]
  16. LOSARTAN [Concomitant]
     Dosage: 50 MG

REACTIONS (9)
  - Cardiac failure congestive [Unknown]
  - Anaemia [Unknown]
  - Pneumonia [Unknown]
  - Pleural effusion [Unknown]
  - Full blood count decreased [Unknown]
  - Lung infection [Unknown]
  - Toxicity to various agents [Unknown]
  - Blood potassium decreased [Unknown]
  - Pyrexia [Unknown]
